FAERS Safety Report 4906564-3 (Version None)
Quarter: 2006Q1

REPORT INFORMATION
  Report Type: 
  Country: None (occurrence: None)
  Receive Date: 20060209
  Receipt Date: 20051128
  Transmission Date: 20060701
  Serious: Yes (Other)
  Sender: FDA-Public Use
  Company Number: HK-BRISTOL-MYERS SQUIBB COMPANY-13194907

PATIENT
  Age: 61 Year
  Sex: Female

DRUGS (7)
  1. BLINDED: MURAGLITAZAR [Suspect]
     Indication: DIABETES MELLITUS NON-INSULIN-DEPENDENT
     Dosage: DOSAGE FORM = TAB
     Route: 048
     Dates: start: 20050714, end: 20051127
  2. GLIMEPIRIDE [Suspect]
     Indication: DIABETES MELLITUS NON-INSULIN-DEPENDENT
     Dosage: DOSAGE FORM = TAB
     Route: 048
     Dates: start: 20050714, end: 20051127
  3. METFORMIN HCL [Suspect]
     Indication: DIABETES MELLITUS NON-INSULIN-DEPENDENT
     Route: 048
     Dates: start: 19910816
  4. NIFEDIPINE [Concomitant]
     Dates: start: 20030301
  5. METOPROLOL [Concomitant]
     Dates: start: 20030301
  6. LANSOPRAZOLE [Concomitant]
     Dates: start: 20040818
  7. NAPROXEN [Concomitant]
     Dates: start: 20050708

REACTIONS (1)
  - BREAST CANCER [None]
